FAERS Safety Report 22340397 (Version 2)
Quarter: 2023Q2

REPORT INFORMATION
  Report Type: Spontaneous
  Country: CA (occurrence: CA)
  Receive Date: 20230518
  Receipt Date: 20230602
  Transmission Date: 20230721
  Serious: Yes (Other)
  Sender: FDA-Public Use
  Company Number: CA-PFIZER INC-2021303521

PATIENT
  Age: 79 Year
  Sex: Male
  Weight: 110.6 kg

DRUGS (7)
  1. RUXIENCE [Suspect]
     Active Substance: RITUXIMAB-PVVR
     Indication: Granulomatosis with polyangiitis
     Dosage: 800 MG, WEEKLY
     Route: 042
  2. RUXIENCE [Suspect]
     Active Substance: RITUXIMAB-PVVR
     Dosage: 880 MG, WEEKLY
     Route: 042
     Dates: start: 20210309
  3. RUXIENCE [Suspect]
     Active Substance: RITUXIMAB-PVVR
     Dosage: 880 MG, WEEKLY
     Route: 042
     Dates: start: 20210309, end: 20210316
  4. RUXIENCE [Suspect]
     Active Substance: RITUXIMAB-PVVR
     Dosage: 880 MG, WEEKLY
     Route: 042
     Dates: start: 20210316
  5. RUXIENCE [Suspect]
     Active Substance: RITUXIMAB-PVVR
     Dosage: 880 MG, WEEKLY
     Route: 042
     Dates: start: 20210607
  6. RUXIENCE [Suspect]
     Active Substance: RITUXIMAB-PVVR
     Dosage: 500 MG, RETREATMENT: DAY 1 AND DAY 15
     Route: 042
     Dates: start: 20211014, end: 20211028
  7. RUXIENCE [Suspect]
     Active Substance: RITUXIMAB-PVVR
     Dosage: 500 MG EVERY 6 MONTHS
     Route: 042
     Dates: start: 20221121

REACTIONS (5)
  - Ingrowing nail [Unknown]
  - Off label use [Unknown]
  - Intentional product use issue [Unknown]
  - Off label use [Unknown]
  - Vasculitis [Unknown]

NARRATIVE: CASE EVENT DATE: 20230101
